FAERS Safety Report 22682861 (Version 5)
Quarter: 2024Q4

REPORT INFORMATION
  Report Type: Report from Study
  Country: US (occurrence: US)
  Receive Date: 20230707
  Receipt Date: 20241112
  Transmission Date: 20250114
  Serious: Yes (Other)
  Sender: TAKEDA
  Company Number: US-TAKEDA-2023TUS066845

PATIENT
  Age: 26 Year
  Sex: Male

DRUGS (3)
  1. RECOMBINATE [Suspect]
     Active Substance: ANTIHEMOPHILIC FACTOR, HUMAN RECOMBINANT
     Indication: Product used for unknown indication
     Dosage: 2000 INTERNATIONAL UNIT
  2. RECOMBINATE [Suspect]
     Active Substance: ANTIHEMOPHILIC FACTOR, HUMAN RECOMBINANT
     Dosage: 2000 INTERNATIONAL UNIT
  3. RECOMBINATE [Suspect]
     Active Substance: ANTIHEMOPHILIC FACTOR, HUMAN RECOMBINANT
     Dosage: 2000 INTERNATIONAL UNIT

REACTIONS (5)
  - Haemorrhage [Not Recovered/Not Resolved]
  - Haemarthrosis [Recovered/Resolved]
  - Muscle haemorrhage [Unknown]
  - Limb injury [Unknown]
  - Pain in extremity [Unknown]

NARRATIVE: CASE EVENT DATE: 20230401
